FAERS Safety Report 4515291-6 (Version None)
Quarter: 2004Q4

REPORT INFORMATION
  Report Type: 
  Country: None (occurrence: None)
  Receive Date: 20041130
  Receipt Date: 20041130
  Transmission Date: 20050328
  Serious: Yes (Death)
  Sender: FDA-Public Use
  Company Number: None

PATIENT
  Age: 22 Year
  Sex: Male
  Weight: 58.9676 kg

DRUGS (1)
  1. ACCUTANE [Suspect]
     Indication: ACNE CYSTIC
     Dosage: 60 MG DAILY ORAL
     Route: 048
     Dates: start: 19981001, end: 19990301

REACTIONS (3)
  - ADVERSE DRUG REACTION [None]
  - COMPLETED SUICIDE [None]
  - DEPRESSION [None]
